FAERS Safety Report 7798251-1 (Version None)
Quarter: 2011Q4

REPORT INFORMATION
  Report Type: 
  Country: None (occurrence: None)
  Receive Date: 20111005
  Receipt Date: 20110923
  Transmission Date: 20120403
  Serious: Yes (Hospitalization, Other)
  Sender: FDA-Public Use
  Company Number: DK-NOVOPROD-335927

PATIENT
  Sex: Male
  Weight: 107 kg

DRUGS (4)
  1. METFORMIN ACTAVIS [Concomitant]
     Indication: TYPE 2 DIABETES MELLITUS
  2. SIMVASTATIN [Concomitant]
     Indication: HYPERLIPIDAEMIA
  3. ACETAMINOPHEN [Concomitant]
     Indication: PAIN
  4. VICTOZA [Suspect]
     Indication: TYPE 2 DIABETES MELLITUS
     Dosage: UNK
     Route: 058
     Dates: start: 20100816, end: 20110830

REACTIONS (2)
  - PANCREATITIS [None]
  - ABDOMINAL PAIN UPPER [None]
